FAERS Safety Report 9459536 (Version 1)
Quarter: 2013Q3

REPORT INFORMATION
  Report Type: Spontaneous
  Country: US (occurrence: US)
  Receive Date: 20130815
  Receipt Date: 20130815
  Transmission Date: 20140515
  Serious: No
  Sender: FDA-Public Use
  Company Number: US-PFIZER INC-2013236193

PATIENT
  Age: 52 Year
  Sex: Female

DRUGS (6)
  1. LYRICA [Suspect]
     Indication: FIBROMYALGIA
     Dosage: UNK
     Route: 048
  2. LYRICA [Suspect]
     Dosage: UNK
     Route: 048
  3. LYRICA [Suspect]
     Dosage: 100MG IN THE MORNING AND 200MG IN THE EVENING
     Route: 048
  4. LYRICA [Suspect]
     Dosage: UNK
     Route: 048
  5. FLEXERIL [Concomitant]
     Dosage: UNK
  6. CELEBREX [Concomitant]

REACTIONS (3)
  - Drug effect incomplete [Unknown]
  - Disturbance in attention [Unknown]
  - Memory impairment [Unknown]
